FAERS Safety Report 7031683-8 (Version None)
Quarter: 2010Q4

REPORT INFORMATION
  Report Type: 
  Country: None (occurrence: None)
  Receive Date: 20101004
  Receipt Date: 20100927
  Transmission Date: 20110411
  Serious: Yes (Hospitalization)
  Sender: FDA-Public Use
  Company Number: KV201000314

PATIENT
  Age: 27 Year
  Sex: Male

DRUGS (1)
  1. PREDNISOLONE [Suspect]
     Indication: VASCULITIS
     Dosage: 50 MG, QD X 2 WEEKS, ORAL; 1000 MG, QD X 3 DAYS
     Route: 048

REACTIONS (1)
  - MENINGITIS MENINGOCOCCAL [None]
